FAERS Safety Report 6811141-3 (Version None)
Quarter: 2010Q2

REPORT INFORMATION
  Report Type: 
  Country: None (occurrence: None)
  Receive Date: 20100630
  Receipt Date: 20090612
  Transmission Date: 20101027
  Serious: No
  Sender: FDA-Public Use
  Company Number: US-AMGEN-KDL351714

PATIENT
  Sex: Male
  Weight: 88.5 kg

DRUGS (1)
  1. PROCRIT [Suspect]
     Indication: RENAL FAILURE CHRONIC

REACTIONS (1)
  - HOT FLUSH [None]
